FAERS Safety Report 9785626 (Version 1)
Quarter: 2013Q4

REPORT INFORMATION
  Report Type: Spontaneous
  Country: US (occurrence: None)
  Receive Date: 20131226
  Receipt Date: 20131226
  Transmission Date: 20140711
  Serious: Yes (Other)
  Sender: FDA-Public Use
  Company Number: None

PATIENT
  Sex: Female
  Weight: 49.9 kg

DRUGS (10)
  1. LOSARTAN POTASSIUM [Suspect]
     Indication: BLOOD PRESSURE
     Route: 048
     Dates: start: 2005, end: 20130913
  2. GLIPIZIDE [Concomitant]
  3. LIPITOR (ATORVASTATIN) [Concomitant]
  4. ROCALTROL [Concomitant]
  5. VITAMIN D [Concomitant]
  6. ALLOPURINOL [Concomitant]
  7. DORZOLOMIDE [Concomitant]
  8. BROMODINE [Concomitant]
  9. LATANAPPES [Concomitant]
  10. VITAMIN B12 [Concomitant]

REACTIONS (1)
  - Renal impairment [None]
